FAERS Safety Report 9646513 (Version 2)
Quarter: 2013Q4

REPORT INFORMATION
  Report Type: Spontaneous
  Country: GB (occurrence: GB)
  Receive Date: 20131025
  Receipt Date: 20131025
  Transmission Date: 20140711
  Serious: Yes (Other)
  Sender: FDA-Public Use
  Company Number: GB-ACTAVIS-2013-04966

PATIENT
  Age: 61 Year
  Sex: Female
  Weight: 62 kg

DRUGS (3)
  1. CLOPIDOGREL (UNKNOWN) [Suspect]
     Indication: RETINAL ARTERY OCCLUSION
     Dosage: 1 DF, DAILY
     Route: 048
     Dates: start: 20121012, end: 20121031
  2. LEVOTHYROXINE [Concomitant]
     Indication: PRODUCT USED FOR UNKNOWN INDICATION
     Dosage: UNKNOWN
     Route: 065
  3. ADCAL D3 [Concomitant]
     Indication: PRODUCT USED FOR UNKNOWN INDICATION
     Dosage: UNKNOWN
     Route: 065

REACTIONS (4)
  - Vertigo [Recovering/Resolving]
  - Dissociation [Unknown]
  - Migraine with aura [Recovering/Resolving]
  - Dizziness [Unknown]
